FAERS Safety Report 19401908 (Version 2)
Quarter: 2021Q2

REPORT INFORMATION
  Report Type: Spontaneous
  Country: NO (occurrence: NO)
  Receive Date: 20210611
  Receipt Date: 20210617
  Transmission Date: 20210717
  Serious: Yes (Other)
  Sender: FDA-Public Use
  Company Number: NO-JNJFOC-20210600532

PATIENT
  Age: 8 Decade
  Sex: Female

DRUGS (3)
  1. LEVAXIN [Concomitant]
     Active Substance: LEVOTHYROXINE SODIUM
     Indication: PRODUCT USED FOR UNKNOWN INDICATION
     Dosage: HAVE NOT HAD ANY ISSUE WITH THIS MEDICATION
     Route: 065
     Dates: start: 1979
  2. PEPCID [Suspect]
     Active Substance: FAMOTIDINE
     Indication: GASTROOESOPHAGEAL REFLUX DISEASE
     Dosage: 1 TABLET 1 HOUR BEFORE A MEAL EVERY DAY. SOME DAYS NOT TOOK PEPCID AT ALL AND SOME DAYS TOOK 2 TABLE
     Route: 065
  3. TRISEKVENS [ESTRADIOL;NORETHISTERONE ACETATE] [Concomitant]
     Indication: PRODUCT USED FOR UNKNOWN INDICATION
     Dosage: HAVE NOT HAD ANY ISSUE WITH THIS MEDICATION
     Route: 065
     Dates: start: 1980

REACTIONS (7)
  - Dry mouth [Not Recovered/Not Resolved]
  - Blood count abnormal [Not Recovered/Not Resolved]
  - Dizziness [Not Recovered/Not Resolved]
  - Thrombocytopenia [Recovered/Resolved]
  - Incorrect product administration duration [Recovered/Resolved]
  - Alopecia [Not Recovered/Not Resolved]
  - Chest discomfort [Not Recovered/Not Resolved]

NARRATIVE: CASE EVENT DATE: 201805
